FAERS Safety Report 8679383 (Version 2)
Quarter: 2012Q4

REPORT INFORMATION
  Report Type: Report from Study
  Country: GB (occurrence: GB)
  Receive Date: 20120724
  Receipt Date: 20121022
  Transmission Date: 20130627
  Serious: Yes (Hospitalization)
  Sender: FDA-Public Use
  Company Number: GB-AMGEN-GBRCT2012035460

PATIENT
  Age: 51 Year
  Sex: Female
  Weight: 116.4 kg

DRUGS (29)
  1. DENOSUMAB [Suspect]
     Indication: BREAST CANCER
     Dosage: 120 mg, UNK
     Route: 058
     Dates: start: 20120525
  2. PEGFILGRASTIM [Concomitant]
     Dosage: 6 mg, UNK
     Route: 058
     Dates: start: 20120417, end: 20120801
  3. TAXOTERE [Concomitant]
     Dosage: UNK
     Route: 042
     Dates: start: 20120416, end: 20120731
  4. ADRIAMYCIN [Concomitant]
     Dosage: 110 mg, UNK
     Route: 042
     Dates: start: 20120416, end: 20120731
  5. CYCLOPHOSPHAMIDE [Concomitant]
     Dosage: 1100 mg, UNK
     Route: 042
     Dates: start: 20120416, end: 20120731
  6. DEXAMETHASONE [Concomitant]
     Dosage: 8 mg, UNK
     Dates: start: 20120415, end: 20120731
  7. TAZOCIN [Concomitant]
     Dosage: 4.5 g, UNK
     Route: 042
     Dates: start: 20120423, end: 20120425
  8. DALTEPARIN [Concomitant]
     Dosage: UNK
     Route: 058
     Dates: start: 20120423, end: 20120423
  9. SENNA [Concomitant]
     Route: 048
     Dates: start: 20040304, end: 20120525
  10. LAXIDO [Concomitant]
     Dosage: UNK
     Route: 048
     Dates: start: 20120423, end: 20120423
  11. TEMAZEPAM [Concomitant]
     Route: 048
     Dates: start: 20020912
  12. DIAZEPAM [Concomitant]
     Route: 048
     Dates: start: 20030529
  13. NAPROXEN [Concomitant]
     Route: 048
     Dates: start: 20111128
  14. QUININE BISULFATE [Concomitant]
     Dosage: 300 mg, UNK
     Route: 048
     Dates: start: 20050427
  15. PARACETAMOL [Concomitant]
     Route: 050
     Dates: start: 20120423, end: 20120425
  16. CODEINE [Concomitant]
     Dosage: 15 mg, UNK
     Route: 048
     Dates: start: 20120425, end: 20120425
  17. CYCLIZINE [Concomitant]
     Dosage: 50 mg, UNK
     Route: 050
     Dates: start: 20120419, end: 20120420
  18. TRAMADOL [Concomitant]
     Dosage: 100 mg, UNK
     Route: 048
     Dates: start: 20120420, end: 20120420
  19. CO CODAMOL [Concomitant]
     Dosage: UNK
     Route: 048
     Dates: start: 20050427, end: 20120421
  20. IBUPROFEN [Concomitant]
     Dosage: 400 mg, UNK
     Route: 048
     Dates: start: 20120419, end: 20120421
  21. OTOMIZE [Concomitant]
     Dosage: UNK
     Route: 061
     Dates: start: 20040304
  22. DOMPERIDONE [Concomitant]
     Dosage: 10 mg, UNK
     Route: 048
     Dates: start: 20120416, end: 20120815
  23. FLUCONAZOLE [Concomitant]
     Dosage: 50 mg, UNK
     Route: 048
     Dates: start: 20120420, end: 20120810
  24. LEVOFLOXACIN [Concomitant]
     Dosage: 500 mg, UNK
     Route: 048
     Dates: start: 20120420, end: 20120813
  25. GRANISETRON [Concomitant]
     Dosage: 3 mg, UNK
     Route: 042
     Dates: start: 20120416, end: 20120731
  26. FUROSEMIDE [Concomitant]
     Route: 048
     Dates: start: 20120529, end: 20120615
  27. DOCUSATE [Concomitant]
     Route: 048
     Dates: start: 20120525, end: 20120615
  28. FYBOGEL [Concomitant]
     Dosage: UNK
     Route: 048
     Dates: start: 20120425
  29. CALCICHEW D3 FORTE [Concomitant]
     Dosage: UNK
     Route: 048
     Dates: start: 20120525

REACTIONS (1)
  - Malaise [Recovered/Resolved]
